FAERS Safety Report 6295815-1 (Version None)
Quarter: 2009Q3

REPORT INFORMATION
  Report Type: 
  Country: None (occurrence: None)
  Receive Date: 20090803
  Receipt Date: 20090803
  Transmission Date: 20100115
  Serious: Yes (Hospitalization)
  Sender: FDA-Public Use
  Company Number: None

PATIENT
  Age: 63 Year
  Sex: Male
  Weight: 108.8633 kg

DRUGS (1)
  1. ZANTAC 150 [Suspect]
     Dosage: 95 DOSES AS NEEDED
     Dates: start: 20080515, end: 20090529

REACTIONS (3)
  - BALANCE DISORDER [None]
  - DIZZINESS POSTURAL [None]
  - NAUSEA [None]
